FAERS Safety Report 7815491-3 (Version None)
Quarter: 2011Q4

REPORT INFORMATION
  Report Type: 
  Country: None (occurrence: None)
  Receive Date: 20111014
  Receipt Date: 20111008
  Transmission Date: 20120403
  Serious: Yes (Hospitalization, Other)
  Sender: FDA-Public Use
  Company Number: PHEH2011US03128

PATIENT
  Sex: Male

DRUGS (1)
  1. TOBI [Suspect]
     Dosage: 0.25 ML OF THE TOBRAMYCIN AND MIX IT WITH 2 ML OF SALINE

REACTIONS (5)
  - PSEUDOMONAS INFECTION [None]
  - SECRETION DISCHARGE [None]
  - LACRIMATION INCREASED [None]
  - RESPIRATORY DISORDER [None]
  - RHINORRHOEA [None]
